FAERS Safety Report 21740691 (Version 1)
Quarter: 2022Q4

REPORT INFORMATION
  Report Type: Spontaneous
  Country: US (occurrence: None)
  Receive Date: 20221215
  Receipt Date: 20221215
  Transmission Date: 20230113
  Serious: Yes (unspecified)
  Sender: FDA-Public Use
  Company Number: None

PATIENT
  Age: 31 Year
  Sex: Female

DRUGS (5)
  1. AMMONIA INHALANTS [Suspect]
     Active Substance: AMMONIA
     Dates: start: 20221028
  2. UNSPECIFIED INGREDIENT [Concomitant]
     Active Substance: UNSPECIFIED INGREDIENT
  3. CREATINE [Concomitant]
     Active Substance: CREATINE
  4. protein powder [Concomitant]
  5. GLUTAMINE [Concomitant]
     Active Substance: GLUTAMINE

REACTIONS (3)
  - Amnesia [None]
  - Depressed level of consciousness [None]
  - Migraine [None]

NARRATIVE: CASE EVENT DATE: 20221028
